FAERS Safety Report 16182925 (Version 17)
Quarter: 2022Q2

REPORT INFORMATION
  Report Type: Other
  Country: CA (occurrence: None)
  Receive Date: 20190411
  Receipt Date: 20220429
  Transmission Date: 20220721
  Serious: Yes (Other)
  Sender: FDA-Public Use
  Company Number: CA-ROCHE-2301920

PATIENT
  Sex: Male

DRUGS (8)
  1. OCREVUS [Suspect]
     Active Substance: OCRELIZUMAB
     Indication: Primary progressive multiple sclerosis
     Dosage: 300 MG AT DAY 0 AND 14, THEN 600 MG EVERY 6 MONTH?SUBSEQUENT DOSE: 11/SEP/2021
     Route: 042
     Dates: start: 20180517
  2. GABAPENTIN [Concomitant]
     Active Substance: GABAPENTIN
     Dosage: ONGOING YES
  3. BACLOFEN [Concomitant]
     Active Substance: BACLOFEN
     Dosage: ONGOING YES
  4. EFFEXOR [Concomitant]
     Active Substance: VENLAFAXINE HYDROCHLORIDE
     Indication: Depression
     Dosage: ONGOING YES
  5. ATIVAN [Concomitant]
     Active Substance: LORAZEPAM
     Dosage: ONGOING: YES
  6. ZOPICLONE [Concomitant]
     Active Substance: ZOPICLONE
     Dosage: ONGOING YES
  7. NITROFURANTOIN [Concomitant]
     Active Substance: NITROFURANTOIN
  8. COVID-19 VACCINE [Concomitant]
     Dosage: SECOND DOSE: 29/MAY/2021

REACTIONS (4)
  - Urinary tract infection [Not Recovered/Not Resolved]
  - Urinary tract infection [Unknown]
  - Infection [Unknown]
  - Back injury [Unknown]

NARRATIVE: CASE EVENT DATE: 20190101
